FAERS Safety Report 12946465 (Version 1)
Quarter: 2016Q4

REPORT INFORMATION
  Report Type: Report from Study
  Country: IT (occurrence: IT)
  Receive Date: 20161116
  Receipt Date: 20161116
  Transmission Date: 20170207
  Serious: Yes (Other)
  Sender: FDA-Public Use
  Company Number: IT-BRISTOL-MYERS SQUIBB COMPANY-BMS-2016-095762

PATIENT
  Age: 83 Year
  Sex: Male

DRUGS (1)
  1. NIVOLUMAB [Suspect]
     Active Substance: NIVOLUMAB
     Indication: NON-SMALL CELL LUNG CANCER
     Dosage: 3 MG/KG, UNK
     Route: 042
     Dates: start: 20160318

REACTIONS (11)
  - Productive cough [Unknown]
  - Fall [Unknown]
  - Asthenia [Unknown]
  - Dyspnoea [Unknown]
  - Visual acuity reduced [Unknown]
  - Constipation [Unknown]
  - Back pain [Unknown]
  - Dizziness [Unknown]
  - Face injury [Unknown]
  - Musculoskeletal pain [Unknown]
  - Decreased appetite [Unknown]

NARRATIVE: CASE EVENT DATE: 20160330
